FAERS Safety Report 19899700 (Version 1)
Quarter: 2021Q3

REPORT INFORMATION
  Report Type: Spontaneous
  Country: US (occurrence: US)
  Receive Date: 20210930
  Receipt Date: 20210930
  Transmission Date: 20211014
  Serious: Yes (Death, Other)
  Sender: FDA-Public Use
  Company Number: US-B.I. PHARMACEUTICALS,INC./RIDGEFIELD-2021-BI-129777

PATIENT
  Age: 91 Year

DRUGS (1)
  1. TRADJENTA [Suspect]
     Active Substance: LINAGLIPTIN
     Indication: DIABETES MELLITUS
     Dosage: 5MG
     Route: 048
     Dates: start: 20210709, end: 20210709

REACTIONS (1)
  - Death [Fatal]

NARRATIVE: CASE EVENT DATE: 20210929
